FAERS Safety Report 5138500-1 (Version None)
Quarter: 2006Q4

REPORT INFORMATION
  Report Type: 
  Country: None (occurrence: None)
  Receive Date: 20061030
  Receipt Date: 20060303
  Transmission Date: 20070319
  Serious: Yes (Hospitalization, Other)
  Sender: FDA-Public Use
  Company Number: US-GLAXOSMITHKLINE-A0596027A

PATIENT
  Age: 58 Year
  Sex: Male
  Weight: 75 kg

DRUGS (1)
  1. ADVAIR HFA [Suspect]
     Indication: ASTHMA
     Route: 055
     Dates: end: 20060301

REACTIONS (2)
  - ASTHENIA [None]
  - SUPRAVENTRICULAR TACHYCARDIA [None]
